FAERS Safety Report 9657865 (Version 2)
Quarter: 2013Q4

REPORT INFORMATION
  Report Type: Report from Study
  Country: VE (occurrence: VE)
  Receive Date: 20131030
  Receipt Date: 20131106
  Transmission Date: 20140711
  Serious: Yes (Other)
  Sender: FDA-Public Use
  Company Number: VE-ROCHE-1296373

PATIENT
  Age: 11 Year
  Sex: Female
  Weight: 38 kg

DRUGS (4)
  1. XOLAIR [Suspect]
     Indication: ASTHMA
     Dosage: AMPULE, PATIENT TOOK LAST DOSE ON SEP 2013
     Route: 065
     Dates: start: 20130509
  2. XOLAIR [Suspect]
     Route: 058
     Dates: start: 201309
  3. XOLAIR [Suspect]
     Route: 058
     Dates: start: 201310, end: 20131028
  4. MONTELUKAST [Concomitant]
     Indication: ASTHMA
     Route: 065
     Dates: start: 201305, end: 201308

REACTIONS (4)
  - Asthmatic crisis [Recovering/Resolving]
  - Dizziness [Recovered/Resolved]
  - Headache [Recovered/Resolved]
  - Tonsillitis [Recovered/Resolved]
